FAERS Safety Report 14001877 (Version 3)
Quarter: 2018Q1

REPORT INFORMATION
  Report Type: Spontaneous
  Country: US (occurrence: US)
  Receive Date: 20170922
  Receipt Date: 20180117
  Transmission Date: 20180508
  Serious: Yes (Hospitalization)
  Sender: FDA-Public Use
  Company Number: US-JNJFOC-20170907904

PATIENT
  Age: 69 Year
  Sex: Male
  Weight: 80.4 kg

DRUGS (12)
  1. XARELTO [Suspect]
     Active Substance: RIVAROXABAN
     Indication: CEREBROVASCULAR ACCIDENT PROPHYLAXIS
     Route: 048
     Dates: start: 20170619, end: 201708
  2. XARELTO [Suspect]
     Active Substance: RIVAROXABAN
     Indication: ATRIAL FIBRILLATION
     Route: 048
     Dates: start: 20170619, end: 201708
  3. XARELTO [Suspect]
     Active Substance: RIVAROXABAN
     Indication: CEREBROVASCULAR ACCIDENT PROPHYLAXIS
     Route: 048
     Dates: start: 20170519
  4. ASPIRIN. [Suspect]
     Active Substance: ASPIRIN
     Indication: ANGIOPATHY
     Route: 065
     Dates: start: 20170410
  5. AMIODARONE [Concomitant]
     Active Substance: AMIODARONE
     Indication: ANGIOPATHY
     Route: 048
     Dates: start: 20170502
  6. LISINOPRIL. [Concomitant]
     Active Substance: LISINOPRIL
     Indication: ANGIOPATHY
     Route: 048
     Dates: start: 20170410
  7. ATORVASTATIN [Concomitant]
     Active Substance: ATORVASTATIN
     Indication: ANGIOPATHY
     Route: 048
     Dates: start: 20170410
  8. AMIODARONE [Concomitant]
     Active Substance: AMIODARONE
     Indication: ATRIAL FIBRILLATION
     Route: 048
     Dates: start: 20170502
  9. XARELTO [Suspect]
     Active Substance: RIVAROXABAN
     Indication: CEREBROVASCULAR ACCIDENT PROPHYLAXIS
     Route: 048
     Dates: start: 20170518
  10. XARELTO [Suspect]
     Active Substance: RIVAROXABAN
     Indication: ATRIAL FIBRILLATION
     Route: 048
     Dates: start: 20170519
  11. XARELTO [Suspect]
     Active Substance: RIVAROXABAN
     Indication: ATRIAL FIBRILLATION
     Route: 048
     Dates: start: 20170518
  12. CARVEDILOL. [Concomitant]
     Active Substance: CARVEDILOL
     Indication: ANGIOPATHY
     Route: 048
     Dates: start: 20170410

REACTIONS (1)
  - Gastrointestinal haemorrhage [Recovering/Resolving]

NARRATIVE: CASE EVENT DATE: 20170806
